FAERS Safety Report 7595727-7 (Version None)
Quarter: 2011Q3

REPORT INFORMATION
  Report Type: 
  Country: None (occurrence: None)
  Receive Date: 20110707
  Receipt Date: 20110705
  Transmission Date: 20111222
  Serious: Yes (Hospitalization)
  Sender: FDA-Public Use
  Company Number: GB-BRISTOL-MYERS SQUIBB COMPANY-15863541

PATIENT
  Age: 51 Year
  Sex: Female

DRUGS (7)
  1. DICLOFENAC SODIUM [Concomitant]
  2. LANSOPRAZOLE [Concomitant]
  3. GLICLAZIDE [Concomitant]
  4. TINZAPARIN SODIUM [Concomitant]
     Dosage: 1800 UNITS
  5. IPILIMUMAB [Suspect]
     Indication: MALIGNANT MELANOMA
     Dosage: 3MG/KG
     Route: 042
     Dates: start: 20110621
  6. ONDANSETRON [Concomitant]
     Dates: start: 20110617
  7. VENLAFAXINE HCL [Concomitant]

REACTIONS (4)
  - FLUSHING [None]
  - HEADACHE [None]
  - PYREXIA [None]
  - MALAISE [None]
